FAERS Safety Report 25620798 (Version 1)
Quarter: 2025Q3

REPORT INFORMATION
  Report Type: Spontaneous
  Country: CN (occurrence: CN)
  Receive Date: 20250730
  Receipt Date: 20250730
  Transmission Date: 20251021
  Serious: Yes (Life-Threatening, Hospitalization, Other)
  Sender: LEADING PHARMA
  Company Number: CN-LEADINGPHARMA-CN-2025LEALIT00133

PATIENT
  Age: 46 Year
  Sex: Male
  Weight: 87 kg

DRUGS (5)
  1. LEUCOVORIN CALCIUM [Suspect]
     Active Substance: LEUCOVORIN CALCIUM
     Indication: Rectal cancer
     Route: 065
     Dates: start: 2024, end: 20240705
  2. IRINOTECAN [Suspect]
     Active Substance: IRINOTECAN
     Indication: Rectal cancer
     Route: 065
     Dates: start: 2024, end: 20240705
  3. OXALIPLATIN [Suspect]
     Active Substance: OXALIPLATIN
     Indication: Rectal cancer
     Route: 065
     Dates: start: 2024, end: 20240705
  4. FLUOROURACIL [Suspect]
     Active Substance: FLUOROURACIL
     Indication: Rectal cancer
     Route: 065
     Dates: start: 2024, end: 20240705
  5. BEVACIZUMAB [Suspect]
     Active Substance: BEVACIZUMAB
     Indication: Rectal cancer
     Route: 065
     Dates: start: 2024, end: 20240705

REACTIONS (6)
  - Myelosuppression [Recovered/Resolved]
  - Drug-induced liver injury [Recovered/Resolved]
  - Febrile neutropenia [Recovered/Resolved]
  - Hepatitis E [Recovered/Resolved]
  - Therapy partial responder [Unknown]
  - Product use in unapproved indication [Unknown]

NARRATIVE: CASE EVENT DATE: 20240101
